FAERS Safety Report 9761583 (Version 1)
Quarter: 2013Q4

REPORT INFORMATION
  Report Type: Spontaneous
  Country: IN (occurrence: IN)
  Receive Date: 20131216
  Receipt Date: 20131216
  Transmission Date: 20140711
  Serious: Yes (Other)
  Sender: FDA-Public Use
  Company Number: PHHY2013IN144646

PATIENT
  Age: 28 Year
  Sex: Female

DRUGS (4)
  1. ISONIAZID [Suspect]
  2. RIFAMPICIN [Suspect]
  3. ETHAMBUTOL [Suspect]
  4. PYRAZINAMIDE [Suspect]

REACTIONS (4)
  - Grand mal convulsion [Unknown]
  - Drug-induced liver injury [Unknown]
  - Aspartate aminotransferase increased [Unknown]
  - Alanine aminotransferase increased [Unknown]
